FAERS Safety Report 23548239 (Version 1)
Quarter: 2024Q1

REPORT INFORMATION
  Report Type: Other
  Country: US (occurrence: None)
  Receive Date: 20240221
  Receipt Date: 20240221
  Transmission Date: 20240410
  Serious: Yes (Hospitalization)
  Sender: FDA-Public Use
  Company Number: US-ROCHE-3344691

PATIENT
  Age: 24 Year
  Sex: Female

DRUGS (1)
  1. PULMOZYME [Suspect]
     Active Substance: DORNASE ALFA
     Indication: Cystic fibrosis
     Dosage: AMPUL, NEBULIZE THE CONTENTS OF 1 VIAL(S) TWICE A DAY?MOST RECENT DOSE ON /AUG/2023
     Route: 065
     Dates: start: 202307

REACTIONS (2)
  - Maternal exposure during pregnancy [Unknown]
  - Pre-eclampsia [Unknown]
